FAERS Safety Report 5893959-7 (Version None)
Quarter: 2008Q3

REPORT INFORMATION
  Report Type: 
  Country: None (occurrence: None)
  Receive Date: 20080923
  Receipt Date: 20080916
  Transmission Date: 20090109
  Serious: Yes (Other)
  Sender: FDA-Public Use
  Company Number: US-B.I. PHARMACEUTICALS,INC./RIDGEFIELD-2008-BP-14337BP

PATIENT
  Age: 78 Year
  Sex: Female

DRUGS (1)
  1. DULCOLAX [Suspect]
     Indication: PREOPERATIVE CARE
     Dosage: 20MG
     Route: 048
     Dates: start: 20080908

REACTIONS (1)
  - COLON CANCER [None]
